FAERS Safety Report 5898973-3 (Version None)
Quarter: 2008Q3

REPORT INFORMATION
  Report Type: 
  Country: None (occurrence: None)
  Receive Date: 20080925
  Receipt Date: 20080619
  Transmission Date: 20090109
  Serious: No
  Sender: FDA-Public Use
  Company Number: JP-EISAI MEDICAL RESEARCH-E2090-00493-SPO-JP

PATIENT
  Age: 68 Year
  Sex: Female

DRUGS (3)
  1. EXCEGRAN [Suspect]
     Indication: TRIGEMINAL NEURALGIA
     Route: 048
     Dates: end: 20030810
  2. CARBAMAZEPINE [Suspect]
     Indication: TRIGEMINAL NEURALGIA
     Dosage: UNKNOWN
     Route: 048
     Dates: end: 20030810
  3. MINOCYCLINE HYDROCHLORIDE [Suspect]
     Indication: PHARYNGITIS
     Dosage: UNKNOWN
     Route: 065
     Dates: start: 20030806, end: 20030810

REACTIONS (1)
  - DRUG RASH WITH EOSINOPHILIA AND SYSTEMIC SYMPTOMS [None]
